FAERS Safety Report 22360025 (Version 1)
Quarter: 2023Q2

REPORT INFORMATION
  Report Type: Spontaneous
  Country: IT (occurrence: IT)
  Receive Date: 20230524
  Receipt Date: 20230524
  Transmission Date: 20230722
  Serious: Yes (Hospitalization)
  Sender: FDA-Public Use
  Company Number: IT-TASMAN PHARMA, INC.-2023TSM00104

PATIENT
  Age: 37 Year
  Sex: Male

DRUGS (3)
  1. CLOZAPINE [Suspect]
     Active Substance: CLOZAPINE
     Indication: Schizophrenia
     Dosage: UNKNOWN INITIAL STARTING DOSE
     Dates: start: 200603
  2. CLOZAPINE [Suspect]
     Active Substance: CLOZAPINE
     Dosage: 500 MG DAILY
  3. CLOZAPINE [Suspect]
     Active Substance: CLOZAPINE
     Dosage: 25 MG (X 2 DOSES)

REACTIONS (1)
  - Colitis microscopic [Recovered/Resolved]

NARRATIVE: CASE EVENT DATE: 20060601
